FAERS Safety Report 25914183 (Version 1)
Quarter: 2025Q4

REPORT INFORMATION
  Report Type: Spontaneous
  Country: EU (occurrence: EU)
  Receive Date: 20251013
  Receipt Date: 20251013
  Transmission Date: 20260118
  Serious: Yes (Death, Other)
  Sender: ASCEND THERAPEUTICS US, LLC
  Company Number: EU-Ascend Therapeutics US, LLC-2186460

PATIENT
  Age: 32 Year
  Sex: Female

DRUGS (10)
  1. ANDROGEL [Suspect]
     Active Substance: TESTOSTERONE
     Indication: Performance enhancing product use
  2. TESTOSTERONE [Suspect]
     Active Substance: TESTOSTERONE
  3. NANDROLONE DECANOATE [Suspect]
     Active Substance: NANDROLONE DECANOATE
  4. LORAZEPAM [Suspect]
     Active Substance: LORAZEPAM
  5. PHENOBARBITAL [Suspect]
     Active Substance: PHENOBARBITAL
  6. METHADONE [Suspect]
     Active Substance: METHADONE HYDROCHLORIDE
  7. CITALOPRAM [Suspect]
     Active Substance: CITALOPRAM
  8. VENLAFAXINE [Suspect]
     Active Substance: VENLAFAXINE HYDROCHLORIDE
  9. HERBALS\TETRAHYDROCANNABINOL UNSPECIFIED [Suspect]
     Active Substance: HERBALS\TETRAHYDROCANNABINOL UNSPECIFIED
  10. CLOZAPINE [Suspect]
     Active Substance: CLOZAPINE

REACTIONS (6)
  - Myocardial fibrosis [Fatal]
  - Drug abuse [Fatal]
  - Testicular atrophy [Fatal]
  - Muscle mass [Fatal]
  - Cardiac death [Fatal]
  - Left ventricular hypertrophy [Fatal]
